FAERS Safety Report 9277497 (Version 1)
Quarter: 2013Q2

REPORT INFORMATION
  Report Type: Spontaneous
  Country: IT (occurrence: IT)
  Receive Date: 20130508
  Receipt Date: 20130508
  Transmission Date: 20140414
  Serious: Yes (Other)
  Sender: FDA-Public Use
  Company Number: IT-MYLANLABS-2013S1009156

PATIENT
  Age: 4 Year
  Sex: Female
  Weight: 17 kg

DRUGS (3)
  1. CITALOPRAM [Suspect]
     Indication: PRODUCT USED FOR UNKNOWN INDICATION
     Route: 048
     Dates: start: 20130204, end: 20130204
  2. NUROFEN [Concomitant]
     Indication: RHINITIS
     Route: 048
  3. ZIRTEC [Concomitant]
     Indication: URTICARIA
     Route: 048

REACTIONS (4)
  - Accidental poisoning [Recovered/Resolved]
  - Agitation [Recovered/Resolved]
  - Heart rate increased [Recovered/Resolved]
  - Nervousness [Recovered/Resolved]
